FAERS Safety Report 7732817-X (Version None)
Quarter: 2011Q3

REPORT INFORMATION
  Report Type: 
  Country: None (occurrence: None)
  Receive Date: 20110901
  Receipt Date: 20110818
  Transmission Date: 20111222
  Serious: Yes (Other)
  Sender: FDA-Public Use
  Company Number: AUR-APL-2011-04706

PATIENT
  Age: 60 Year
  Sex: Female
  Weight: 61 kg

DRUGS (6)
  1. ASPRIRIN (ACETYLSALICYLIC ACID) [Concomitant]
  2. HYPURIN BOVINE LENTE (INSULIN ZINC SUSPENSION) [Concomitant]
  3. OLMESARTAN MEDOXOMIL [Concomitant]
  4. LEVOTHYROXINE SODIUM [Concomitant]
  5. SERTRALINE HYDROCHLORIDE [Suspect]
     Indication: DEPRESSED MOOD
     Dosage: (50 MG), ORAL
     Route: 048
     Dates: start: 20090216, end: 20090404
  6. MACROGOL (MACROGOL) [Concomitant]

REACTIONS (13)
  - PARAESTHESIA [None]
  - HEADACHE [None]
  - ARTHRALGIA [None]
  - ABNORMAL DREAMS [None]
  - DYSPEPSIA [None]
  - SWOLLEN TONGUE [None]
  - DYSPHAGIA [None]
  - AMNESIA [None]
  - GRAND MAL CONVULSION [None]
  - AGITATION [None]
  - EAR PAIN [None]
  - EXCESSIVE EYE BLINKING [None]
  - DIZZINESS [None]
